FAERS Safety Report 10831711 (Version 1)
Quarter: 2015Q1

REPORT INFORMATION
  Report Type: Report from Study
  Country: US (occurrence: US)
  Receive Date: 20150219
  Receipt Date: 20150219
  Transmission Date: 20150721
  Serious: No
  Sender: FDA-Public Use
  Company Number: US-ABBVIE-14P-163-1195957-00

PATIENT
  Age: 53 Year
  Sex: Male
  Weight: 108.96 kg

DRUGS (3)
  1. BENICAR HCT [Concomitant]
     Active Substance: HYDROCHLOROTHIAZIDE\OLMESARTAN MEDOXOMIL
     Indication: HYPERTENSION
  2. HUMIRA [Suspect]
     Active Substance: ADALIMUMAB
     Indication: RHEUMATOID ARTHRITIS
     Route: 058
     Dates: start: 200603
  3. SIMVASTATIN. [Concomitant]
     Active Substance: SIMVASTATIN
     Indication: BLOOD CHOLESTEROL INCREASED

REACTIONS (3)
  - Cough [Recovered/Resolved]
  - Respiratory tract congestion [Recovered/Resolved]
  - Paranasal sinus hypersecretion [Recovered/Resolved]

NARRATIVE: CASE EVENT DATE: 201312
